FAERS Safety Report 4412687-8 (Version None)
Quarter: 2004Q2

REPORT INFORMATION
  Report Type: 
  Country: None (occurrence: None)
  Receive Date: 20040630
  Receipt Date: 20040312
  Transmission Date: 20050107
  Serious: No
  Sender: FDA-Public Use
  Company Number: 04P-163-0253869-00

PATIENT
  Age: 59 Year
  Sex: Female
  Weight: 136.0791 kg

DRUGS (11)
  1. HUMIRA [Suspect]
     Indication: RHEUMATOID ARTHRITIS
     Dosage: 40 MG, 1 IN 2 WK, SUBCUTANEOUS
     Route: 058
     Dates: start: 20040201
  2. FLUOXETINE HCL [Concomitant]
  3. COLCHICINE [Concomitant]
  4. RABEPRAZOLE SODIUM [Concomitant]
  5. CARVEDILOL [Concomitant]
  6. MULTIVITAMIN [Concomitant]
  7. VITAMIN F [Concomitant]
  8. ASCORBIC ACID [Concomitant]
  9. CALCIUM [Concomitant]
  10. HYDROCODONE [Concomitant]
  11. FOLIC ACID [Concomitant]

REACTIONS (1)
  - INJECTION SITE BURNING [None]
